FAERS Safety Report 25208674 (Version 8)
Quarter: 2025Q3

REPORT INFORMATION
  Report Type: Spontaneous
  Country: CA (occurrence: CA)
  Receive Date: 20250417
  Receipt Date: 20250728
  Transmission Date: 20251021
  Serious: Yes (Life-Threatening, Hospitalization, Other)
  Sender: TEVA
  Company Number: CA-TEVA-VS-3322810

PATIENT
  Sex: Female

DRUGS (18)
  1. METFORMIN HYDROCHLORIDE [Suspect]
     Active Substance: METFORMIN HYDROCHLORIDE
     Indication: Type 2 diabetes mellitus
     Route: 065
  2. METFORMIN HYDROCHLORIDE [Suspect]
     Active Substance: METFORMIN HYDROCHLORIDE
     Indication: Type 2 diabetes mellitus
     Route: 065
  3. ROSUVASTATIN [Concomitant]
     Active Substance: ROSUVASTATIN
     Indication: Product used for unknown indication
     Route: 065
  4. ROSUVASTATIN [Concomitant]
     Active Substance: ROSUVASTATIN
     Indication: Product used for unknown indication
     Route: 058
  5. ROSUVASTATIN [Concomitant]
     Active Substance: ROSUVASTATIN
     Indication: Product used for unknown indication
     Route: 065
  6. EMPAGLIFLOZIN [Concomitant]
     Active Substance: EMPAGLIFLOZIN
     Indication: Type 2 diabetes mellitus
     Route: 065
  7. METFORMIN [Concomitant]
     Active Substance: METFORMIN HYDROCHLORIDE
     Indication: Product used for unknown indication
     Route: 065
  8. METFORMIN [Concomitant]
     Active Substance: METFORMIN HYDROCHLORIDE
     Indication: Product used for unknown indication
     Route: 065
  9. ROSUVASTATIN [Suspect]
     Active Substance: ROSUVASTATIN
     Indication: Ischaemic stroke
     Route: 065
  10. ROSUVASTATIN [Suspect]
     Active Substance: ROSUVASTATIN
     Indication: Ischaemic stroke
     Route: 065
  11. ROSUVASTATIN [Suspect]
     Active Substance: ROSUVASTATIN
     Indication: Ischaemic stroke
     Route: 065
  12. ROSUVASTATIN [Suspect]
     Active Substance: ROSUVASTATIN
     Indication: Ischaemic stroke
     Route: 065
  13. ROSUVASTATIN [Suspect]
     Active Substance: ROSUVASTATIN
     Indication: Ischaemic stroke
     Route: 065
  14. ROSUVASTATIN [Suspect]
     Active Substance: ROSUVASTATIN
     Indication: Ischaemic stroke
     Dosage: DOSE FORM: NOT SPECIFIED
     Route: 048
  15. ROSUVASTATIN [Suspect]
     Active Substance: ROSUVASTATIN
     Indication: Ischaemic stroke
     Route: 048
  16. ROSUVASTATIN [Suspect]
     Active Substance: ROSUVASTATIN
     Indication: Ischaemic stroke
     Route: 065
  17. SITAGLIPTIN [Concomitant]
     Active Substance: SITAGLIPTIN
     Indication: Type 2 diabetes mellitus
     Route: 065
  18. JARDIANCE [Concomitant]
     Active Substance: EMPAGLIFLOZIN
     Indication: Product used for unknown indication
     Route: 065

REACTIONS (12)
  - Euglycaemic diabetic ketoacidosis [Recovered/Resolved]
  - Lactic acidosis [Recovered/Resolved]
  - Rhabdomyolysis [Unknown]
  - Acute kidney injury [Unknown]
  - Haemodialysis [Recovered/Resolved]
  - Myalgia [Recovered/Resolved]
  - Hypovolaemia [Recovered/Resolved]
  - Hypophagia [Recovered/Resolved]
  - Vomiting [Recovered/Resolved]
  - Nausea [Recovered/Resolved]
  - Treatment noncompliance [Recovered/Resolved]
  - Toxicity to various agents [Recovered/Resolved]
